FAERS Safety Report 5073811-X (Version None)
Quarter: 2006Q3

REPORT INFORMATION
  Report Type: 
  Country: None (occurrence: None)
  Receive Date: 20060717
  Receipt Date: 20060215
  Transmission Date: 20061208
  Serious: No
  Sender: FDA-Public Use
  Company Number: 2006000378

PATIENT
  Sex: Female

DRUGS (1)
  1. TARCEVA [Suspect]
     Indication: NON-SMALL CELL LUNG CANCER
     Dosage: 150 MG (QD), ORAL
     Route: 048

REACTIONS (2)
  - HAIR GROWTH ABNORMAL [None]
  - RASH [None]
